FAERS Safety Report 20649414 (Version 1)
Quarter: 2022Q1

REPORT INFORMATION
  Report Type: Spontaneous
  Country: US (occurrence: None)
  Receive Date: 20220329
  Receipt Date: 20220329
  Transmission Date: 20220423
  Serious: No
  Sender: FDA-Public Use
  Company Number: None

PATIENT
  Age: 39 Year
  Sex: Male
  Weight: 118.34 kg

DRUGS (9)
  1. TEMOZOLOMIDE [Suspect]
     Active Substance: TEMOZOLOMIDE
     Indication: Brain neoplasm malignant
     Dosage: FREQUENCY : DAILY;?
     Route: 048
  2. AMLODIPINE [Suspect]
     Active Substance: AMLODIPINE BESYLATE
  3. BETAMETHASONE [Suspect]
     Active Substance: BETAMETHASONE
  4. KETOCONAZOLE [Suspect]
     Active Substance: KETOCONAZOLE
  5. LATANOPROST [Suspect]
     Active Substance: LATANOPROST
  6. LEVETIRACETAM [Suspect]
     Active Substance: LEVETIRACETAM
  7. LISINOPRIL [Suspect]
     Active Substance: LISINOPRIL
  8. NORCO [Suspect]
     Active Substance: ACETAMINOPHEN\HYDROCODONE BITARTRATE
  9. TIMOLOL [Suspect]
     Active Substance: TIMOLOL

REACTIONS (1)
  - Disease recurrence [None]
